FAERS Safety Report 9274785 (Version 1)
Quarter: 2013Q2

REPORT INFORMATION
  Report Type: Spontaneous
  Country: US (occurrence: None)
  Receive Date: 20130429
  Receipt Date: 20130429
  Transmission Date: 20140414
  Serious: Yes (Other)
  Sender: FDA-Public Use
  Company Number: CABO-13002602

PATIENT
  Age: 41 Year
  Sex: Male

DRUGS (6)
  1. COMETRIQ (CABOZANTINIB) CAPSULE [Suspect]
     Indication: THYROID CANCER
     Route: 048
     Dates: start: 20130201, end: 20130226
  2. HYDROCORTISONE (HYDROCORTISONE) [Concomitant]
  3. FLUDROCORTISONE (FLUDROCORTISONE) [Concomitant]
  4. ZOLOFT (SERTRALINE HYDROCHLORIDE) [Concomitant]
  5. PRILOSEC [Concomitant]
  6. FENTANYL (FENTANYL) [Concomitant]

REACTIONS (7)
  - Loss of consciousness [None]
  - Fall [None]
  - Dizziness [None]
  - Genital rash [None]
  - Nasal dryness [None]
  - Dry skin [None]
  - Rash generalised [None]
